FAERS Safety Report 4554920-8 (Version None)
Quarter: 2004Q4

REPORT INFORMATION
  Report Type: 
  Country: None (occurrence: None)
  Receive Date: 20041222
  Receipt Date: 20040922
  Transmission Date: 20050328
  Serious: Yes (Other)
  Sender: FDA-Public Use
  Company Number: 209227

PATIENT
  Sex: 0

DRUGS (1)
  1. AVASTIN [Suspect]
     Dosage: INTRAVENOUS
     Route: 042

REACTIONS (1)
  - CARDIAC FAILURE CONGESTIVE [None]
